FAERS Safety Report 6544439-7 (Version None)
Quarter: 2010Q1

REPORT INFORMATION
  Report Type: 
  Country: None (occurrence: None)
  Receive Date: 20100120
  Receipt Date: 20100120
  Transmission Date: 20100710
  Serious: Yes (Other)
  Sender: FDA-Public Use
  Company Number: None

PATIENT
  Sex: Female
  Weight: 78.6 kg

DRUGS (1)
  1. PHENTERMINE CAPSULES (BLUE/NATURAL) 30 MG LANNETT [Suspect]
     Indication: WEIGHT DECREASED
     Dosage: 30 MG  DAILY ORAL
     Route: 048
     Dates: start: 20100104, end: 20100115

REACTIONS (3)
  - DIARRHOEA [None]
  - PRODUCT SUBSTITUTION ISSUE [None]
  - TREATMENT FAILURE [None]
